FAERS Safety Report 9968963 (Version 1)
Quarter: 2014Q1

REPORT INFORMATION
  Report Type: Report from Study
  Country: US (occurrence: US)
  Receive Date: 20140306
  Receipt Date: 20140306
  Transmission Date: 20141002
  Serious: No
  Sender: FDA-Public Use
  Company Number: US-ABBVIE-13P-163-1141062-00

PATIENT
  Age: 79 Year
  Sex: Male

DRUGS (8)
  1. HUMIRA [Suspect]
     Indication: COLITIS ULCERATIVE
     Dates: start: 20130823, end: 20130823
  2. HUMIRA [Suspect]
     Dates: start: 20130824, end: 20130824
  3. HUMIRA [Suspect]
     Dosage: RECEIVED IN ERROR
     Dates: start: 20130825, end: 20130825
  4. HUMIRA [Suspect]
     Dates: start: 20130901
  5. METFORMIN [Concomitant]
     Indication: DIABETES MELLITUS
  6. ASACOL [Concomitant]
     Indication: COLITIS ULCERATIVE
     Dosage: 2 TABLETS PER DAY
  7. BALSALAZIDE [Concomitant]
     Indication: FUNCTIONAL GASTROINTESTINAL DISORDER
     Dosage: 10 TABLETS PER DAY
  8. LISINOPRIL [Concomitant]
     Indication: HYPERTENSION
     Dosage: 40MG PER DAY

REACTIONS (2)
  - Extra dose administered [Unknown]
  - Inappropriate schedule of drug administration [Not Recovered/Not Resolved]
